FAERS Safety Report 9715780 (Version 2)
Quarter: 2013Q4

REPORT INFORMATION
  Report Type: Spontaneous
  Country: US (occurrence: IN)
  Receive Date: 20131127
  Receipt Date: 20131209
  Transmission Date: 20140711
  Serious: Yes (Other)
  Sender: FDA-Public Use
  Company Number: US-BAYER-2013-143953

PATIENT
  Age: 67 Year
  Sex: Male

DRUGS (2)
  1. REGORAFENIB [Suspect]
     Indication: RECTAL CANCER STAGE IV
     Dosage: 160 MG, QD
     Route: 048
     Dates: start: 201311, end: 2013
  2. REGORAFENIB [Suspect]
     Indication: RECTAL CANCER STAGE IV
     Dosage: UNK
     Dates: start: 2013

REACTIONS (1)
  - Gastric ulcer [None]
